FAERS Safety Report 8590753 (Version 4)
Quarter: 2012Q4

REPORT INFORMATION
  Report Type: Report from Study
  Country: MX (occurrence: MX)
  Receive Date: 20120601
  Receipt Date: 20121030
  Transmission Date: 20130627
  Serious: Yes (Death)
  Sender: FDA-Public Use
  Company Number: MX-ROCHE-1072696

PATIENT
  Age: 56 Year
  Sex: Female
  Weight: 68 kg

DRUGS (15)
  1. TRASTUZUMAB [Suspect]
     Indication: BREAST CANCER
     Dosage: last dose taken: 408 mg,last dose prior to event: 04May/2012
     Route: 042
     Dates: start: 20111021
  2. DOCETAXEL [Suspect]
     Indication: BREAST CANCER
     Dosage: date of last dose prior to event: 04May/2012, last dose taken: 120 mg
     Route: 042
     Dates: start: 20111021
  3. METFORMIN [Concomitant]
     Indication: TYPE 2 DIABETES MELLITUS
  4. GLIBENCLAMIDA [Concomitant]
     Indication: TYPE 2 DIABETES MELLITUS
  5. PREGABALIN [Concomitant]
     Indication: NEUROPATHY PERIPHERAL
     Route: 065
     Dates: start: 20111209, end: 20120518
  6. RANITIDINE [Concomitant]
     Route: 065
     Dates: start: 20120413, end: 20120427
  7. RANITIDINE [Concomitant]
     Route: 065
     Dates: start: 20120504
  8. LOPERAMIDE [Concomitant]
     Indication: DIARRHOEA
     Route: 065
     Dates: start: 20120504, end: 20120510
  9. GRANISETRON [Concomitant]
     Indication: NAUSEA
     Route: 065
     Dates: start: 20120504, end: 20120510
  10. GRANISETRON [Concomitant]
     Route: 065
     Dates: start: 20111021, end: 20120504
  11. DEXAMETHASONE [Concomitant]
     Indication: ASTHENIA
     Route: 065
     Dates: start: 20120504, end: 20120510
  12. LORATADINE [Concomitant]
     Route: 065
     Dates: start: 20120504, end: 20120510
  13. BUTILBROMURO DE HIOSCINA [Concomitant]
     Indication: DIARRHOEA
     Route: 065
     Dates: start: 20120508, end: 20120510
  14. BUTILBROMURO DE HIOSCINA [Concomitant]
     Indication: GASTROINTESTINAL TOXICITY
  15. CLOROPIRAMINA [Concomitant]
     Route: 065
     Dates: start: 20111021, end: 20120504

REACTIONS (1)
  - Myocardial infarction [Fatal]
